FAERS Safety Report 13135276 (Version 2)
Quarter: 2017Q3

REPORT INFORMATION
  Report Type: Spontaneous
  Country: US (occurrence: US)
  Receive Date: 20170120
  Receipt Date: 20170926
  Transmission Date: 20171127
  Serious: No
  Sender: FDA-Public Use
  Company Number: US-PFIZER INC-2017024365

PATIENT
  Age: 50 Year
  Sex: Female

DRUGS (5)
  1. XELJANZ XR [Suspect]
     Active Substance: TOFACITINIB CITRATE
     Indication: RHEUMATOID ARTHRITIS
     Dosage: 11 MG, DAILY
     Route: 048
     Dates: end: 201708
  2. METHYLPREDNISOLONE ACETATE. [Interacting]
     Active Substance: METHYLPREDNISOLONE ACETATE
     Dosage: UNK
  3. METHOTREXATE. [Concomitant]
     Active Substance: METHOTREXATE
     Indication: RHEUMATOID ARTHRITIS
     Dosage: 6 (NO UNIT PROVIDED), INJECTED ONCE WEEKLY
  4. XELJANZ XR [Interacting]
     Active Substance: TOFACITINIB CITRATE
     Dosage: 11 MG, DAILY
     Route: 048
     Dates: start: 20170819
  5. FOLIC ACID. [Concomitant]
     Active Substance: FOLIC ACID
     Dosage: UNK

REACTIONS (7)
  - Drug interaction [Unknown]
  - Nausea [Unknown]
  - Hyperhidrosis [Unknown]
  - Condition aggravated [Recovered/Resolved]
  - Adrenal disorder [Unknown]
  - Feeling hot [Unknown]
  - Chills [Unknown]
